FAERS Safety Report 23596436 (Version 1)
Quarter: 2024Q1

REPORT INFORMATION
  Report Type: Spontaneous
  Country: US (occurrence: None)
  Receive Date: 20240304
  Receipt Date: 20240304
  Transmission Date: 20240409
  Serious: No
  Sender: FDA-Public Use
  Company Number: None

PATIENT
  Age: 44 Year
  Sex: Male
  Weight: 72.12 kg

DRUGS (4)
  1. TALTZ [Suspect]
     Active Substance: IXEKIZUMAB
     Indication: Axial spondyloarthritis
     Dosage: FREQUENCY : MONTHLY;?
     Route: 058
     Dates: start: 202402
  2. TALTZ [Suspect]
     Active Substance: IXEKIZUMAB
     Indication: Ankylosing spondylitis
  3. LITHIUM [Suspect]
     Active Substance: LITHIUM
     Indication: Axial spondyloarthritis
  4. LITHIUM [Suspect]
     Active Substance: LITHIUM
     Indication: Ankylosing spondylitis

REACTIONS (1)
  - Mental disorder [None]
